FAERS Safety Report 7190050-7 (Version None)
Quarter: 2010Q4

REPORT INFORMATION
  Report Type: 
  Country: None (occurrence: None)
  Receive Date: 20101223
  Receipt Date: 20101215
  Transmission Date: 20110411
  Serious: Yes (Hospitalization)
  Sender: FDA-Public Use
  Company Number: JP-JNJFOC-20101204409

PATIENT
  Age: 69 Year
  Sex: Male

DRUGS (3)
  1. DUROTEP MT [Suspect]
     Indication: CANCER PAIN
     Route: 062
  2. MORPHINE [Suspect]
     Indication: CANCER PAIN
     Route: 065
  3. UNKNOWN MEDICATION [Suspect]
     Indication: LUNG NEOPLASM MALIGNANT

REACTIONS (1)
  - DELIRIUM [None]
